FAERS Safety Report 9534412 (Version 1)
Quarter: 2013Q3

REPORT INFORMATION
  Report Type: Spontaneous
  Country: US (occurrence: US)
  Receive Date: 20130918
  Receipt Date: 20130918
  Transmission Date: 20140515
  Serious: No
  Sender: FDA-Public Use
  Company Number: US-PURDUE-USA-2011-0079390

PATIENT
  Sex: Female
  Weight: 44.9 kg

DRUGS (1)
  1. BUTRANS [Suspect]
     Indication: HEADACHE
     Dosage: 10 MCG, Q1H
     Route: 062

REACTIONS (4)
  - Drug ineffective [Unknown]
  - Pain [Unknown]
  - Feeling abnormal [Unknown]
  - Therapeutic response delayed [Unknown]
